FAERS Safety Report 11021786 (Version 2)
Quarter: 2015Q2

REPORT INFORMATION
  Report Type: Spontaneous
  Country: US (occurrence: US)
  Receive Date: 20150413
  Receipt Date: 20150609
  Transmission Date: 20150821
  Serious: Yes (Hospitalization)
  Sender: FDA-Public Use
  Company Number: US-BAYER-2015-123686

PATIENT
  Age: 26 Year
  Sex: Female
  Weight: 43.99 kg

DRUGS (2)
  1. MIRENA [Suspect]
     Active Substance: LEVONORGESTREL
     Indication: CONTRACEPTION
     Dosage: 20 MCG/24HR, CONT
     Route: 015
     Dates: start: 20130114, end: 20130118
  2. MIRENA [Suspect]
     Active Substance: LEVONORGESTREL
     Indication: CONTRACEPTION
     Dosage: 20 MCG/24HR, CONT
     Route: 015
     Dates: start: 20130118, end: 20140721

REACTIONS (7)
  - Device dislocation [None]
  - Abdominal pain [None]
  - Back pain [None]
  - Device expulsion [None]
  - Uterine perforation [None]
  - Injury [None]
  - Scar [None]

NARRATIVE: CASE EVENT DATE: 201301
